FAERS Safety Report 5476149-1 (Version None)
Quarter: 2007Q4

REPORT INFORMATION
  Report Type: 
  Country: None (occurrence: None)
  Receive Date: 20071003
  Receipt Date: 20070927
  Transmission Date: 20080405
  Serious: Yes (Hospitalization)
  Sender: FDA-Public Use
  Company Number: BR-JNJFOC-20071000238

PATIENT
  Age: 24 Year
  Sex: Female
  Weight: 74 kg

DRUGS (1)
  1. MICRONOR [Suspect]
     Indication: CONTRACEPTION
     Route: 048

REACTIONS (6)
  - AGITATION [None]
  - HEADACHE [None]
  - HYPOTENSION [None]
  - MOOD ALTERED [None]
  - NERVOUSNESS [None]
  - SYNCOPE [None]
